FAERS Safety Report 7982514-0 (Version None)
Quarter: 2011Q4

REPORT INFORMATION
  Report Type: 
  Country: None (occurrence: None)
  Receive Date: 20111215
  Receipt Date: 20111201
  Transmission Date: 20120403
  Serious: Yes (Death)
  Sender: FDA-Public Use
  Company Number: GB-ROCHE-1017970

PATIENT
  Sex: Male

DRUGS (10)
  1. XELODA [Suspect]
     Indication: GASTRIC CANCER
     Dosage: 1000 MG IN MORNING, 1150 MG IN EVENING
     Route: 048
     Dates: start: 20110204
  2. LORAZEPAM [Suspect]
     Indication: PRODUCT USED FOR UNKNOWN INDICATION
     Route: 048
     Dates: end: 20110213
  3. AVASTIN [Suspect]
     Indication: GASTRIC CANCER
     Dosage: DATE OF LAST DOSE PRIOR TO SAE: 4/FEB/2011
     Route: 042
     Dates: start: 20110204
  4. CISPLATIN [Suspect]
     Indication: GASTRIC CANCER
     Dosage: LAST DSOE PRIOR TO SAE: 4/FEB/2011
     Route: 042
     Dates: start: 20110204
  5. LANSOPRAZOLE [Suspect]
     Indication: PRODUCT USED FOR UNKNOWN INDICATION
     Route: 042
     Dates: end: 20110213
  6. SCOPOLAMINE HYDROBROMIDE [Suspect]
     Indication: PRODUCT USED FOR UNKNOWN INDICATION
     Route: 048
     Dates: end: 20110213
  7. BUPRENORPHINE [Suspect]
     Indication: PRODUCT USED FOR UNKNOWN INDICATION
     Route: 048
     Dates: end: 20110213
  8. CYCLIZINE [Suspect]
     Indication: PRODUCT USED FOR UNKNOWN INDICATION
     Route: 042
     Dates: end: 20110213
  9. EPIRUBICIN HYDROCHLORIDE [Suspect]
     Indication: GASTRIC CANCER
     Dosage: LAST DOSE PRIOR TO SAE: 4/FEB/2011
     Route: 042
     Dates: start: 20110204
  10. METOCLOPRAMIDE [Suspect]
     Indication: PRODUCT USED FOR UNKNOWN INDICATION
     Route: 042
     Dates: end: 20110213

REACTIONS (1)
  - DEATH [None]
